FAERS Safety Report 9448289 (Version 1)
Quarter: 2013Q3

REPORT INFORMATION
  Report Type: Spontaneous
  Country: US (occurrence: US)
  Receive Date: 20130808
  Receipt Date: 20130808
  Transmission Date: 20140515
  Serious: Yes (Other)
  Sender: FDA-Public Use
  Company Number: US-PFIZER INC-2013228103

PATIENT
  Age: 61 Year
  Sex: Female
  Weight: 68.03 kg

DRUGS (2)
  1. CELEBREX [Suspect]
     Indication: JOINT INJURY
     Dosage: UNK
     Dates: start: 201205
  2. CELEBREX [Suspect]
     Indication: BACK INJURY
     Dosage: 200 MG, 1X/DAY
     Dates: start: 20130619, end: 20130622

REACTIONS (7)
  - Product quality issue [Recovered/Resolved]
  - Aphagia [Recovered/Resolved]
  - Dysstasia [Recovered/Resolved]
  - Urinary tract pain [Recovered/Resolved]
  - Pyrexia [Recovered/Resolved]
  - Asthenia [Recovered/Resolved]
  - Infection [Recovered/Resolved]
